FAERS Safety Report 7646730-X (Version None)
Quarter: 2011Q3

REPORT INFORMATION
  Report Type: 
  Country: None (occurrence: None)
  Receive Date: 20110729
  Receipt Date: 20110729
  Transmission Date: 20111222
  Serious: Yes (Life-Threatening)
  Sender: FDA-Public Use
  Company Number: None

PATIENT
  Sex: Female
  Weight: 220 kg

DRUGS (2)
  1. NIASPAN [Suspect]
     Indication: BLOOD CHOLESTEROL INCREASED
     Dosage: 1 TABLET DAILY MOUTH
     Route: 048
     Dates: start: 20110704
  2. LIPITOR [Concomitant]

REACTIONS (10)
  - AGITATION [None]
  - FEAR [None]
  - NERVOUS SYSTEM DISORDER [None]
  - PAIN IN EXTREMITY [None]
  - DRY SKIN [None]
  - ARTHRALGIA [None]
  - BURNING SENSATION [None]
  - BLISTER [None]
  - NERVOUSNESS [None]
  - PRURITUS [None]
